FAERS Safety Report 4768911-5 (Version None)
Quarter: 2005Q3

REPORT INFORMATION
  Report Type: 
  Country: None (occurrence: None)
  Receive Date: 20050914
  Receipt Date: 20050815
  Transmission Date: 20060218
  Serious: Yes (Other)
  Sender: FDA-Public Use
  Company Number: 082-05

PATIENT
  Age: 62 Year
  Sex: Female

DRUGS (2)
  1. BUMETANIDE [Suspect]
     Indication: DIURETIC THERAPY
     Dosage: MG ONCE DAILY PO
     Route: 048
     Dates: start: 20050707
  2. ROSIGLITAZONE MALEATE [Concomitant]

REACTIONS (1)
  - BLISTER [None]
